FAERS Safety Report 17098230 (Version 2)
Quarter: 2019Q4

REPORT INFORMATION
  Report Type: Spontaneous
  Country: US (occurrence: US)
  Receive Date: 20191202
  Receipt Date: 20191206
  Transmission Date: 20200122
  Serious: No
  Sender: FDA-Public Use
  Company Number: US-PFIZER INC-2019515783

PATIENT
  Age: 85 Year
  Sex: Female
  Weight: 58.5 kg

DRUGS (2)
  1. IBRANCE [Suspect]
     Active Substance: PALBOCICLIB
     Dosage: 100 MG, CYCLIC (DAILY 21 DAYS OUT OF 28 DAYS)
     Route: 048
     Dates: start: 201811
  2. LETROZOLE. [Concomitant]
     Active Substance: LETROZOLE
     Dosage: UNK

REACTIONS (1)
  - Paraesthesia [Unknown]
